FAERS Safety Report 6158870-5 (Version None)
Quarter: 2009Q2

REPORT INFORMATION
  Report Type: 
  Country: None (occurrence: None)
  Receive Date: 20090417
  Receipt Date: 20090410
  Transmission Date: 20091009
  Serious: Yes (Other)
  Sender: FDA-Public Use
  Company Number: US-ASTRAZENECA-2008UW27496

PATIENT
  Age: 43 Year
  Sex: Female
  Weight: 107 kg

DRUGS (5)
  1. SEROQUEL [Suspect]
     Indication: MENTAL DISORDER
     Dosage: 100 MG TO 300 MG
     Route: 048
     Dates: start: 20050106, end: 20050725
  2. SEROQUEL [Suspect]
     Dosage: 200 MG TO 400 MG
     Route: 048
     Dates: start: 20051005, end: 20061102
  3. ABILIFY [Concomitant]
  4. RISPERDAL [Concomitant]
  5. THORAZINE [Concomitant]

REACTIONS (5)
  - HYSTERECTOMY [None]
  - INTESTINAL OBSTRUCTION [None]
  - NEPHROLITHIASIS [None]
  - PANCREATITIS [None]
  - TYPE 1 DIABETES MELLITUS [None]
